FAERS Safety Report 17105396 (Version 1)
Quarter: 2019Q4

REPORT INFORMATION
  Report Type: Spontaneous
  Country: PL (occurrence: PL)
  Receive Date: 20191203
  Receipt Date: 20191203
  Transmission Date: 20200122
  Serious: Yes (Death, Life-Threatening, Other)
  Sender: FDA-Public Use
  Company Number: PL-AMGEN-POLSP2019199129

PATIENT

DRUGS (1)
  1. BLINCYTO [Suspect]
     Active Substance: BLINATUMOMAB
     Indication: B PRECURSOR TYPE ACUTE LEUKAEMIA
     Dosage: UNK MICROGRAM PER CUBIC METRE, CYCLICAL
     Route: 042

REACTIONS (19)
  - Acute lymphocytic leukaemia recurrent [Fatal]
  - Anaemia [Unknown]
  - Hepatotoxicity [Unknown]
  - Seizure [Unknown]
  - Speech disorder [Unknown]
  - Balance disorder [Unknown]
  - Coordination abnormal [Unknown]
  - Hypokalaemia [Unknown]
  - Myalgia [Unknown]
  - Tachycardia [Recovered/Resolved]
  - Headache [Unknown]
  - Tremor [Unknown]
  - Electrocardiogram QRS complex shortened [Recovered/Resolved]
  - Therapy non-responder [Unknown]
  - Nausea [Unknown]
  - Hypotension [Unknown]
  - Capillary leak syndrome [Unknown]
  - Leukopenia [Unknown]
  - Pyrexia [Unknown]
